FAERS Safety Report 5338153-3 (Version None)
Quarter: 2007Q2

REPORT INFORMATION
  Report Type: 
  Country: None (occurrence: None)
  Receive Date: 20070530
  Receipt Date: 20070521
  Transmission Date: 20071010
  Serious: Yes (Hospitalization)
  Sender: FDA-Public Use
  Company Number: PHEH2007US06800

PATIENT
  Age: 63 Year
  Sex: Female

DRUGS (3)
  1. ZELNORM [Suspect]
     Indication: IRRITABLE BOWEL SYNDROME
     Dosage: 2 MG, QD
     Route: 048
     Dates: start: 20060824, end: 20070401
  2. ESTRADIOL [Concomitant]
  3. ACETYLSALICYLIC ACID SRT [Concomitant]
     Route: 048

REACTIONS (6)
  - CEREBROVASCULAR ACCIDENT [None]
  - DYSARTHRIA [None]
  - HEMIPARESIS [None]
  - HYPOAESTHESIA [None]
  - MUSCULAR WEAKNESS [None]
  - TRANSIENT ISCHAEMIC ATTACK [None]
